FAERS Safety Report 7332527-7 (Version None)
Quarter: 2011Q1

REPORT INFORMATION
  Report Type: 
  Country: None (occurrence: None)
  Receive Date: 20110228
  Receipt Date: 20110228
  Transmission Date: 20110831
  Serious: Yes (Other)
  Sender: FDA-Public Use
  Company Number: None

PATIENT
  Age: 53 Year
  Sex: Male
  Weight: 89.8122 kg

DRUGS (1)
  1. LEVAQUIN [Suspect]
     Indication: ABSCESS
     Dosage: 500 MILLIGRAMS DAILY PO
     Route: 048
     Dates: start: 20110203, end: 20110211

REACTIONS (1)
  - TENDON PAIN [None]
